FAERS Safety Report 23452889 (Version 1)
Quarter: 2024Q1

REPORT INFORMATION
  Report Type: Spontaneous
  Country: US (occurrence: US)
  Receive Date: 20240129
  Receipt Date: 20240129
  Transmission Date: 20240410
  Serious: No
  Sender: FDA-Public Use
  Company Number: US-drreddys-SPO/USA/23/0186869

PATIENT
  Sex: Female

DRUGS (2)
  1. CLONIDINE [Suspect]
     Active Substance: CLONIDINE
     Indication: Product used for unknown indication
     Route: 062
  2. CLONIDINE [Suspect]
     Active Substance: CLONIDINE

REACTIONS (2)
  - Product quality issue [Unknown]
  - Application site pruritus [Unknown]
